FAERS Safety Report 7497788-2 (Version None)
Quarter: 2011Q2

REPORT INFORMATION
  Report Type: 
  Country: None (occurrence: None)
  Receive Date: 20110524
  Receipt Date: 20110426
  Transmission Date: 20111010
  Serious: Yes (Other)
  Sender: FDA-Public Use
  Company Number: US-BAYER-201016089NA

PATIENT
  Age: 19 Year
  Sex: Female
  Weight: 90.703 kg

DRUGS (6)
  1. ALEVE (CAPLET) [Concomitant]
  2. EXCEDRIN (MIGRAINE) [Concomitant]
     Indication: MIGRAINE
     Dosage: UNK UNK, PRN
  3. YASMIN [Suspect]
     Indication: CONTRACEPTION
     Dosage: UNK UNK, QD
     Route: 048
     Dates: start: 20030901, end: 20070501
  4. YASMIN [Suspect]
     Indication: DYSMENORRHOEA
  5. METAMUCIL-2 [Concomitant]
  6. YASMIN [Suspect]
     Indication: MENSTRUATION IRREGULAR

REACTIONS (4)
  - INJURY [None]
  - CHOLECYSTITIS CHRONIC [None]
  - ABDOMINAL PAIN UPPER [None]
  - NAUSEA [None]
